FAERS Safety Report 17973556 (Version 1)
Quarter: 2020Q3

REPORT INFORMATION
  Report Type: Spontaneous
  Country: IT (occurrence: IT)
  Receive Date: 20200702
  Receipt Date: 20200702
  Transmission Date: 20201103
  Serious: Yes (Disabling)
  Sender: FDA-Public Use
  Company Number: IT-TEVA-2020-IT-1794023

PATIENT
  Age: 76 Year
  Sex: Female
  Weight: 60 kg

DRUGS (3)
  1. ISOPTIN [Concomitant]
     Active Substance: VERAPAMIL HYDROCHLORIDE
     Dosage: 160 MG
     Route: 048
  2. COUMADIN [Concomitant]
     Active Substance: WARFARIN SODIUM
  3. AMIODARONE [Suspect]
     Active Substance: AMIODARONE
     Indication: ATRIAL FIBRILLATION
     Dosage: 200 MG
     Route: 048
     Dates: start: 20190328, end: 20191128

REACTIONS (2)
  - Optic neuritis [Recovered/Resolved with Sequelae]
  - Visual acuity reduced [Recovered/Resolved with Sequelae]

NARRATIVE: CASE EVENT DATE: 20190923
